FAERS Safety Report 19154099 (Version 2)
Quarter: 2021Q2

REPORT INFORMATION
  Report Type: Spontaneous
  Country: AR (occurrence: AR)
  Receive Date: 20210419
  Receipt Date: 20210528
  Transmission Date: 20210717
  Serious: No
  Sender: FDA-Public Use
  Company Number: AR-PFIZER INC-2021376969

PATIENT
  Age: 68 Year
  Sex: Female

DRUGS (1)
  1. ENBREL [Suspect]
     Active Substance: ETANERCEPT
     Indication: RHEUMATOID ARTHRITIS
     Dosage: 50 MG, WEEKLY
     Dates: start: 20140305

REACTIONS (10)
  - Wrong technique in device usage process [Unknown]
  - Malaise [Not Recovered/Not Resolved]
  - Synovial disorder [Not Recovered/Not Resolved]
  - Drug dose omission by device [Unknown]
  - Device leakage [Unknown]
  - Incorrect dose administered by device [Unknown]
  - Pain [Not Recovered/Not Resolved]
  - Device occlusion [Unknown]
  - Mental disorder due to a general medical condition [Not Recovered/Not Resolved]
  - Arthralgia [Not Recovered/Not Resolved]

NARRATIVE: CASE EVENT DATE: 202103
